FAERS Safety Report 5689107-9 (Version None)
Quarter: 2008Q1

REPORT INFORMATION
  Report Type: 
  Country: None (occurrence: None)
  Receive Date: 20080331
  Receipt Date: 19780407
  Transmission Date: 20080703
  Serious: Yes (Death, Life-Threatening, Hospitalization, Other)
  Sender: FDA-Public Use
  Company Number: US-ROCHE-780200050001

PATIENT
  Age: 50 Year
  Sex: Male
  Weight: 61.2 kg

DRUGS (4)
  1. VALIUM [Suspect]
     Indication: DRUG USE FOR UNKNOWN INDICATION
     Route: 048
     Dates: start: 19780217, end: 19780217
  2. INDERAL [Suspect]
     Route: 048
     Dates: start: 19780217, end: 19780217
  3. DALMANE [Suspect]
     Indication: DRUG USE FOR UNKNOWN INDICATION
     Route: 048
  4. ALCOHOL [Suspect]
     Indication: DRUG USE FOR UNKNOWN INDICATION
     Route: 065

REACTIONS (18)
  - ABNORMAL BEHAVIOUR [None]
  - ARTERIOSCLEROSIS [None]
  - ARTERIOSCLEROSIS CORONARY ARTERY [None]
  - DIARRHOEA [None]
  - EMPHYSEMA [None]
  - FAECAL INCONTINENCE [None]
  - HYPOTENSION [None]
  - HYPOVOLAEMIA [None]
  - HYPOXIA [None]
  - OESOPHAGEAL ULCER [None]
  - OVERDOSE [None]
  - PHYSICAL ASSAULT [None]
  - PULMONARY FIBROSIS [None]
  - SEDATION [None]
  - SKIN LACERATION [None]
  - STUPOR [None]
  - SUICIDAL IDEATION [None]
  - VISCERAL CONGESTION [None]
